FAERS Safety Report 14850132 (Version 1)
Quarter: 2018Q2

REPORT INFORMATION
  Report Type: Spontaneous
  Country: US (occurrence: US)
  Receive Date: 20180505
  Receipt Date: 20180505
  Transmission Date: 20180711
  Serious: No
  Sender: FDA-Public Use
  Company Number: US-ASTRAZENECA-2018SE45293

PATIENT
  Sex: Male
  Weight: 6.8 kg

DRUGS (2)
  1. NEXIUM [Suspect]
     Active Substance: ESOMEPRAZOLE MAGNESIUM
     Dosage: 5.0MG UNKNOWN
     Route: 048
  2. NEXIUM [Suspect]
     Active Substance: ESOMEPRAZOLE MAGNESIUM
     Dosage: 2.5MG UNKNOWN
     Route: 048

REACTIONS (6)
  - Condition aggravated [Unknown]
  - Restlessness [Unknown]
  - Off label use [Unknown]
  - Pain [Unknown]
  - Insomnia [Unknown]
  - Product use in unapproved indication [Unknown]
